FAERS Safety Report 24435096 (Version 1)
Quarter: 2024Q4

REPORT INFORMATION
  Report Type: Report from Study
  Country: HU (occurrence: HU)
  Receive Date: 20241014
  Receipt Date: 20241014
  Transmission Date: 20250115
  Serious: Yes (Life-Threatening, Hospitalization)
  Sender: ABBVIE
  Company Number: HU-ABBVIE-5959783

PATIENT
  Sex: Male

DRUGS (12)
  1. CARBIDOPA\LEVODOPA [Suspect]
     Active Substance: CARBIDOPA\LEVODOPA
     Indication: Parkinson^s disease
     Dosage: MORNING DOSE: 4.3 ML; CONTINUOUS DOSE: 2.5 ML/HOUR; EXTRA DOSE: 1 ML
     Route: 050
     Dates: start: 20210720, end: 20240521
  2. CARBIDOPA\LEVODOPA [Suspect]
     Active Substance: CARBIDOPA\LEVODOPA
     Dosage: MORNING DOSE: 4.2 ML; CONTINUOUS DOSE: 2.0 ML; EXTRA DOSE: 1.0 ML
     Route: 050
     Dates: start: 20240925
  3. VITAMIN B12 [Concomitant]
     Active Substance: CYANOCOBALAMIN
     Indication: Prophylaxis
     Route: 030
     Dates: start: 202108
  4. GELBRA [Concomitant]
     Indication: Prophylaxis
  5. PERINDOPRIL [Concomitant]
     Active Substance: PERINDOPRIL
     Indication: Hypertension
     Dosage: STRENGTH 4 MILLIGRAM
     Route: 048
     Dates: start: 202405
  6. CLOPIDOGREL [Concomitant]
     Active Substance: CLOPIDOGREL BISULFATE
     Indication: Prophylaxis
     Dosage: 150 MILLIGRAM?FORM STRENGTH: 75 MILLIGRAM
     Route: 048
  7. INDAPAMIDE\PERINDOPRIL ERBUMINE [Concomitant]
     Active Substance: INDAPAMIDE\PERINDOPRIL ERBUMINE
     Indication: Hypertension
     Dosage: 4 MG PERINDOPRIL-TERC-BUTIL-AMIN  AND 1.25 MG INDAPAMIDE / TABLET
     Route: 048
  8. RIVOTRIL [Concomitant]
     Active Substance: CLONAZEPAM
     Indication: Depression
     Dosage: STRENGTH: 0.5 MILLIGRAM
     Route: 048
  9. ALFUZOSIN [Concomitant]
     Active Substance: ALFUZOSIN
     Indication: Benign prostatic hyperplasia
     Dosage: STRENGTH 10 MILLIGRAM
     Route: 048
  10. TEGRETOL XR [Concomitant]
     Active Substance: CARBAMAZEPINE
     Indication: Parkinson^s disease
     Dosage: 400 MILLIGRAM?STRENGTH: 200 MILLIGRAM
     Route: 048
  11. DULODET [Concomitant]
     Indication: Depression
     Dosage: STRENGTH: 60 MILLIGRAM
     Route: 048
  12. DULODET [Concomitant]
     Indication: Depression
     Dosage: STRENGTH: 30 MILLIGRAM
     Route: 048

REACTIONS (7)
  - Myocardial infarction [Recovering/Resolving]
  - Coronary artery stenosis [Not Recovered/Not Resolved]
  - Back pain [Unknown]
  - Hallucination [Unknown]
  - Movement disorder [Recovered/Resolved]
  - Weight decreased [Unknown]
  - Pain in extremity [Unknown]

NARRATIVE: CASE EVENT DATE: 20220101
